FAERS Safety Report 8334325-4 (Version None)
Quarter: 2012Q2

REPORT INFORMATION
  Report Type: 
  Country: None (occurrence: None)
  Receive Date: 20120503
  Receipt Date: 20120427
  Transmission Date: 20120825
  Serious: Yes (Hospitalization, Other)
  Sender: FDA-Public Use
  Company Number: IT-PFIZER INC-2012105849

PATIENT
  Age: 95 Year
  Sex: Male

DRUGS (2)
  1. AMLODIPINE BESYLATE [Suspect]
     Dosage: 1 DF, DAILY
     Route: 048
     Dates: start: 20110331
  2. ZOLOFT [Suspect]
     Dosage: 1 DF, DAILY
     Route: 048
     Dates: start: 20110331

REACTIONS (1)
  - BRADYCARDIA [None]
